FAERS Safety Report 19430022 (Version 1)
Quarter: 2021Q2

REPORT INFORMATION
  Report Type: Spontaneous
  Country: US (occurrence: US)
  Receive Date: 20210617
  Receipt Date: 20210617
  Transmission Date: 20210717
  Serious: No
  Sender: FDA-Public Use
  Company Number: US-PFIZER INC-2021303087

PATIENT
  Age: 82 Year
  Sex: Female

DRUGS (2)
  1. CELEBREX [Suspect]
     Active Substance: CELECOXIB
     Indication: PAIN
     Dosage: UNK (CELEBREX X 14 DAYS)
     Dates: start: 2021
  2. CELEBREX [Suspect]
     Active Substance: CELECOXIB
     Indication: MUSCLE SPASMS

REACTIONS (1)
  - Drug ineffective [Unknown]

NARRATIVE: CASE EVENT DATE: 2021
